FAERS Safety Report 6119949-7 (Version None)
Quarter: 2009Q1

REPORT INFORMATION
  Report Type: 
  Country: None (occurrence: None)
  Receive Date: 20090316
  Receipt Date: 20090302
  Transmission Date: 20090719
  Serious: Yes (Other)
  Sender: FDA-Public Use
  Company Number: JP-ROCHE-612645

PATIENT
  Sex: Female
  Weight: 49 kg

DRUGS (24)
  1. XELODA [Suspect]
     Indication: BREAST CANCER METASTATIC
     Dosage: DRUG: XELODA 300. 3 WEEKS ADMINISTRATION FOLLOWED BY 1 WEEK REST.
     Route: 048
     Dates: start: 20081210, end: 20090120
  2. PACLITAXEL [Suspect]
     Indication: BREAST CANCER METASTATIC
     Route: 041
     Dates: start: 20081210, end: 20081210
  3. PACLITAXEL [Suspect]
     Route: 041
     Dates: start: 20081217, end: 20081217
  4. PACLITAXEL [Suspect]
     Route: 041
     Dates: start: 20081224, end: 20081224
  5. PACLITAXEL [Suspect]
     Route: 041
     Dates: start: 20090107, end: 20090107
  6. PACLITAXEL [Suspect]
     Route: 041
     Dates: start: 20090114, end: 20090114
  7. NASEA [Concomitant]
     Route: 041
     Dates: start: 20081210, end: 20081210
  8. NASEA [Concomitant]
     Route: 041
     Dates: start: 20081217, end: 20081217
  9. NASEA [Concomitant]
     Route: 041
     Dates: start: 20081224, end: 20081224
  10. NASEA [Concomitant]
     Route: 041
     Dates: start: 20090107, end: 20090107
  11. NASEA [Concomitant]
     Route: 041
     Dates: start: 20090114, end: 20090114
  12. GASTER [Concomitant]
     Route: 041
     Dates: start: 20081210, end: 20081210
  13. GASTER [Concomitant]
     Route: 041
     Dates: start: 20081217, end: 20081217
  14. GASTER [Concomitant]
     Route: 041
     Dates: start: 20081224, end: 20081224
  15. GASTER [Concomitant]
     Route: 041
     Dates: start: 20090107, end: 20090107
  16. GASTER [Concomitant]
     Route: 041
     Dates: start: 20090114, end: 20090114
  17. DECADRON [Concomitant]
     Route: 041
     Dates: start: 20081210, end: 20081210
  18. DECADRON [Concomitant]
     Route: 041
     Dates: start: 20081217, end: 20081217
  19. DECADRON [Concomitant]
     Route: 041
     Dates: start: 20081224, end: 20081224
  20. DECADRON [Concomitant]
     Route: 041
     Dates: start: 20090107, end: 20090107
  21. DECADRON [Concomitant]
     Route: 041
     Dates: start: 20090114, end: 20090114
  22. PREDONINE [Concomitant]
     Route: 048
     Dates: start: 20071210
  23. SELBEX [Concomitant]
     Route: 048
     Dates: start: 20071210
  24. FOLIAMIN [Concomitant]
     Dates: start: 20071210

REACTIONS (2)
  - DRUG ERUPTION [None]
  - NEUTROPENIA [None]
